FAERS Safety Report 8511891-7 (Version None)
Quarter: 2012Q3

REPORT INFORMATION
  Report Type: 
  Country: None (occurrence: None)
  Receive Date: 20120716
  Receipt Date: 20120709
  Transmission Date: 20120928
  Serious: No
  Sender: FDA-Public Use
  Company Number: US-BAYER-2012-068315

PATIENT
  Sex: Male

DRUGS (2)
  1. LEVITRA [Suspect]
     Indication: PERFORMANCE STATUS DECREASED
     Dosage: 10 MG, ONCE
     Route: 048
     Dates: start: 20031001, end: 20031001
  2. ANTIHYPERTENSIVES [Concomitant]

REACTIONS (1)
  - HEADACHE [None]
